FAERS Safety Report 9828736 (Version 1)
Quarter: 2014Q1

REPORT INFORMATION
  Report Type: Spontaneous
  Country: TR (occurrence: TR)
  Receive Date: 20140117
  Receipt Date: 20140117
  Transmission Date: 20141002
  Serious: Yes (Life-Threatening, Hospitalization)
  Sender: FDA-Public Use
  Company Number: TR-B.I. PHARMACEUTICALS,INC./RIDGEFIELD-2014-BI-02144TK

PATIENT
  Age: 60 Year
  Sex: Male

DRUGS (7)
  1. SPIRIVA [Suspect]
     Indication: CHRONIC OBSTRUCTIVE PULMONARY DISEASE
     Route: 055
     Dates: start: 20131212, end: 20140108
  2. FORADIL COMBI [Suspect]
     Indication: CHRONIC OBSTRUCTIVE PULMONARY DISEASE
     Route: 055
     Dates: start: 2009
  3. DILTIZEM SR 90 [Concomitant]
     Indication: CORONARY ARTERY DISEASE
     Route: 048
     Dates: start: 2009
  4. DILTIZEM SR 90 [Concomitant]
     Indication: MYOCARDIAL ISCHAEMIA
  5. MONODUR 60MG [Concomitant]
     Indication: CORONARY ARTERY DISEASE
     Dosage: 60 MG
     Route: 048
     Dates: start: 2009
  6. MONODUR 60MG [Concomitant]
     Indication: MYOCARDIAL ISCHAEMIA
  7. ATACAND [Concomitant]
     Indication: CORONARY ARTERY DISEASE
     Dosage: 8 MG
     Route: 048
     Dates: start: 2003

REACTIONS (1)
  - Cardiac arrest [Recovered/Resolved]
